FAERS Safety Report 8539012-5 (Version None)
Quarter: 2012Q3

REPORT INFORMATION
  Report Type: 
  Country: None (occurrence: None)
  Receive Date: 20120726
  Receipt Date: 20120723
  Transmission Date: 20120928
  Serious: Yes (Hospitalization)
  Sender: FDA-Public Use
  Company Number: PHEH2012US013158

PATIENT
  Sex: Female

DRUGS (4)
  1. RECLAST [Suspect]
     Dosage: UNK
     Route: 042
  2. CARDIZEM [Concomitant]
  3. METOPROLOL SUCCINATE [Concomitant]
  4. CLARITIN [Concomitant]

REACTIONS (13)
  - SWOLLEN TONGUE [None]
  - PHARYNGEAL OEDEMA [None]
  - DYSPHAGIA [None]
  - CHEST PAIN [None]
  - WHEEZING [None]
  - ATRIAL FIBRILLATION [None]
  - HYPERVENTILATION [None]
  - ANXIETY [None]
  - HYPERSENSITIVITY [None]
  - URTICARIA [None]
  - DYSPNOEA [None]
  - LIP SWELLING [None]
  - SKIN PAPILLOMA [None]
